FAERS Safety Report 5245398-X (Version None)
Quarter: 2007Q1

REPORT INFORMATION
  Report Type: 
  Country: None (occurrence: None)
  Receive Date: 20070223
  Receipt Date: 20070213
  Transmission Date: 20070707
  Serious: Yes (Other)
  Sender: FDA-Public Use
  Company Number: PHEH2006US09660

PATIENT
  Age: 65 Year
  Sex: Male

DRUGS (13)
  1. ZOMETA [Suspect]
     Indication: METASTASES TO BONE
     Dosage: 4 MG, QMO
     Dates: start: 20030314, end: 20050713
  2. ANTIBIOTICS [Concomitant]
  3. K-DUR 10 [Concomitant]
     Dosage: 20 MEQ, BID
     Route: 048
  4. OXYCODONE AND ACETAMINOPHEN [Concomitant]
     Indication: PAIN
     Dosage: 5/325 PO Q4HRS PRN
     Route: 048
  5. COUMADIN [Concomitant]
     Indication: DEEP VEIN THROMBOSIS
     Dosage: 4 MG, UNK
     Route: 048
     Dates: start: 20060215
  6. ATENOLOL [Concomitant]
     Indication: HYPERTENSION
     Dosage: 25 MG, QD
     Route: 048
     Dates: start: 20020304, end: 20030806
  7. DEXAMETHASONE [Concomitant]
     Indication: PROSTATIC SPECIFIC ANTIGEN INCREASED
     Dosage: 1.5 TABS BID
     Route: 048
     Dates: start: 20020304, end: 20060207
  8. ACCUPRIL [Concomitant]
     Indication: HYPERTENSION
     Dosage: 40 MG, QD
     Route: 048
     Dates: start: 20020304, end: 20060207
  9. GLUCOVANCE [Concomitant]
     Indication: DIABETES MELLITUS
     Dosage: 1 PO BID
     Route: 048
     Dates: start: 20031029
  10. LIPITOR                                 /NET/ [Concomitant]
     Indication: BLOOD CHOLESTEROL INCREASED
     Dosage: 40 MG, QD
     Route: 048
     Dates: start: 20020304, end: 20040714
  11. RADIATION THERAPY [Concomitant]
     Indication: METASTASES TO BONE
     Dosage: 3600 CGY TO RIGHT MANDIBLE
     Dates: start: 20030325, end: 20030410
  12. TAXOTERE [Concomitant]
     Indication: PROSTATE CANCER
     Dosage: 158 MG, QW3
     Route: 042
     Dates: start: 20060111, end: 20060518
  13. PREDNISONE TAB [Concomitant]
     Indication: PROSTATE CANCER
     Dosage: 5 MG BID TAPERING
     Route: 048
     Dates: start: 20060111

REACTIONS (14)
  - BONE DISORDER [None]
  - DECREASED APPETITE [None]
  - DEEP VEIN THROMBOSIS [None]
  - DISEASE PROGRESSION [None]
  - FISTULA [None]
  - INFECTION [None]
  - JAW DISORDER [None]
  - OSTEONECROSIS [None]
  - PAIN IN JAW [None]
  - PRIMARY SEQUESTRUM [None]
  - RESORPTION BONE INCREASED [None]
  - SINUS OPERATION [None]
  - SINUSITIS [None]
  - WEIGHT DECREASED [None]
